FAERS Safety Report 10405135 (Version 1)
Quarter: 2014Q3

REPORT INFORMATION
  Report Type: Report from Study
  Country: UA (occurrence: UA)
  Receive Date: 20140825
  Receipt Date: 20140825
  Transmission Date: 20150326
  Serious: Yes (Death, Life-Threatening)
  Sender: FDA-Public Use
  Company Number: UA-ROCHE-1450264

PATIENT

DRUGS (1)
  1. CEFTRIAXONE. [Suspect]
     Active Substance: CEFTRIAXONE
     Indication: PRODUCT USED FOR UNKNOWN INDICATION
     Route: 065

REACTIONS (13)
  - Angioedema [Unknown]
  - Anaphylactic shock [Unknown]
  - Toxic epidermal necrolysis [Unknown]
  - Overdose [Unknown]
  - Off label use [Unknown]
  - Urticaria [Unknown]
  - Drug hypersensitivity [Unknown]
  - Rash [Unknown]
  - Death [Fatal]
  - Bone marrow failure [Unknown]
  - Hypersensitivity [Unknown]
  - Dyspepsia [Unknown]
  - Pyrexia [Unknown]
